FAERS Safety Report 7739403 (Version 3)
Quarter: 2012Q4

REPORT INFORMATION
  Report Type: Report from Study
  Country: DE (occurrence: DE)
  Receive Date: 20101224
  Receipt Date: 20121221
  Transmission Date: 20130627
  Serious: Yes (Hospitalization)
  Sender: FDA-Public Use
  Company Number: DE-ELI_LILLY_AND_COMPANY-DE201012004408

PATIENT
  Age: 47 Year
  Sex: Male
  Weight: 50 kg

DRUGS (16)
  1. GEMCITABINE HYDROCHLORIDE [Suspect]
     Indication: NON-SMALL CELL LUNG CANCER
     Dosage: 2000 mg, other
     Route: 042
     Dates: start: 20101122, end: 20101129
  2. CISPLATIN [Suspect]
     Indication: NON-SMALL CELL LUNG CANCER
     Dosage: 120 mg, other
     Route: 042
     Dates: start: 20101122, end: 20101129
  3. PANTOPRAZOLE [Concomitant]
     Indication: GASTROOESOPHAGEAL REFLUX DISEASE
     Dates: start: 20101104
  4. NALOXONE W/TILIDINE [Concomitant]
     Indication: CANCER PAIN
     Dates: start: 20101123
  5. LAXOBERAL [Concomitant]
     Indication: CONSTIPATION
     Dates: start: 20101214
  6. METAMIZOL [Concomitant]
     Indication: PNEUMONIA
     Dosage: UNK
     Dates: start: 20101104, end: 20110118
  7. METOCLOPRAMID [Concomitant]
     Indication: GASTROOESOPHAGEAL REFLUX DISEASE
     Dosage: UNK
     Dates: start: 20101213, end: 20101216
  8. ACC                                /00082801/ [Concomitant]
     Indication: PNEUMONIA
     Dosage: UNK
     Dates: start: 20101112, end: 20101212
  9. MULTIBIONTA PLUS MINERAL [Concomitant]
     Dosage: UNK
     Dates: start: 20101104
  10. BROMHEXIN [Concomitant]
     Indication: PNEUMONIA
     Dosage: UNK
     Dates: start: 20101104, end: 20101111
  11. TRYASOL [Concomitant]
     Indication: PNEUMONIA
     Dosage: UNK
     Dates: start: 20101104, end: 20101111
  12. AMOXICILLIN [Concomitant]
     Indication: PNEUMONIA
     Dosage: UNK
     Dates: start: 20101104, end: 20101111
  13. TAVANIC [Concomitant]
     Indication: PNEUMONIA
     Dosage: UNK
     Dates: start: 20101112, end: 20101122
  14. CLEXANE [Concomitant]
     Indication: THROMBOSIS
     Dosage: UNK
     Dates: start: 20011211, end: 20101122
  15. CLEXANE [Concomitant]
     Dosage: UNK
     Dates: start: 20101213, end: 20101213
  16. AREDIA [Concomitant]
     Dosage: UNK
     Dates: start: 20101115, end: 20101115

REACTIONS (4)
  - Osteolysis [Not Recovered/Not Resolved]
  - Neutropenia [Recovered/Resolved with Sequelae]
  - Mucosal inflammation [Recovered/Resolved with Sequelae]
  - Anaemia [Recovered/Resolved with Sequelae]
